FAERS Safety Report 9434396 (Version 2)
Quarter: 2013Q3

REPORT INFORMATION
  Report Type: Spontaneous
  Country: US (occurrence: US)
  Receive Date: 20130801
  Receipt Date: 20130918
  Transmission Date: 20140515
  Serious: Yes (Hospitalization)
  Sender: FDA-Public Use
  Company Number: US-JNJFOC-20130715414

PATIENT
  Age: 73 Year
  Sex: Female
  Weight: 69.85 kg

DRUGS (7)
  1. REMICADE [Suspect]
     Indication: PSORIATIC ARTHROPATHY
     Route: 042
     Dates: start: 20120106, end: 20130219
  2. REMICADE [Suspect]
     Indication: PSORIASIS
     Route: 042
     Dates: start: 20120106, end: 20130219
  3. PRO-AIR [Suspect]
     Indication: ASTHMA
     Route: 055
  4. PREDNISONE [Suspect]
     Indication: ASTHMA
     Route: 065
  5. METHOTREXATE [Concomitant]
     Indication: PSORIASIS
     Route: 065
     Dates: start: 20120920, end: 20130219
  6. FOLIC ACID [Concomitant]
     Route: 065
     Dates: start: 20120920, end: 20130219
  7. TRIAMTERENE / HCTZ [Concomitant]
     Indication: BLOOD PRESSURE
     Route: 048

REACTIONS (1)
  - Pneumonia fungal [Recovering/Resolving]
